FAERS Safety Report 9618848 (Version 3)
Quarter: 2014Q1

REPORT INFORMATION
  Report Type: Spontaneous
  Country: TR (occurrence: TR)
  Receive Date: 20131014
  Receipt Date: 20140221
  Transmission Date: 20141002
  Serious: Yes (Death, Other)
  Sender: FDA-Public Use
  Company Number: TR-AMGEN-TURSP2013040987

PATIENT
  Sex: 0

DRUGS (1)
  1. ENBREL [Suspect]
     Indication: PRODUCT USED FOR UNKNOWN INDICATION
     Dosage: 50 MG, WEEKLY
     Route: 064
     Dates: start: 20110404, end: 201303

REACTIONS (4)
  - Maternal exposure during pregnancy [Fatal]
  - Premature baby [Fatal]
  - Umbilical cord abnormality [Recovered/Resolved]
  - Weight decreased [Unknown]
